FAERS Safety Report 21601515 (Version 1)
Quarter: 2022Q4

REPORT INFORMATION
  Report Type: Spontaneous
  Country: DE (occurrence: None)
  Receive Date: 20221116
  Receipt Date: 20221116
  Transmission Date: 20230113
  Serious: Yes (Other)
  Sender: FDA-Public Use
  Company Number: DE-ROCHE-3218518

PATIENT
  Age: 32 Year
  Sex: Female

DRUGS (5)
  1. RITUXIMAB [Suspect]
     Active Substance: RITUXIMAB
     Indication: Lupus nephritis
     Route: 065
     Dates: start: 2016
  2. BENLYSTA [Concomitant]
     Active Substance: BELIMUMAB
     Indication: Lupus nephritis
     Dates: start: 2016, end: 202103
  3. METHOTREXATE [Concomitant]
     Active Substance: METHOTREXATE
     Indication: Lupus nephritis
     Dates: start: 2016, end: 202103
  4. PREDNISONE [Concomitant]
     Active Substance: PREDNISONE
     Indication: Lupus nephritis
     Dates: start: 202104
  5. HYDROXYCHLOROQUINE [Concomitant]
     Active Substance: HYDROXYCHLOROQUINE
     Indication: Lupus nephritis
     Dates: start: 202104

REACTIONS (2)
  - Off label use [Unknown]
  - Pericarditis [Not Recovered/Not Resolved]

NARRATIVE: CASE EVENT DATE: 20180101
